FAERS Safety Report 10366447 (Version 1)
Quarter: 2014Q3

REPORT INFORMATION
  Report Type: Spontaneous
  Country: IT (occurrence: None)
  Receive Date: 20140804
  Receipt Date: 20140804
  Transmission Date: 20150326
  Serious: Yes (Other)
  Sender: FDA-Public Use
  Company Number: 2014IT00905

PATIENT
  Age: 44 Year
  Sex: Male
  Weight: 87 kg

DRUGS (1)
  1. LAMIVUDINE ( LAMIVUDINE) TABLET, 100 MG [Suspect]
     Active Substance: LAMIVUDINE
     Indication: CHRONIC HEPATITIS B
     Dates: start: 200212, end: 201112

REACTIONS (1)
  - Virologic failure [None]

NARRATIVE: CASE EVENT DATE: 200601
